FAERS Safety Report 4557331-4 (Version None)
Quarter: 2005Q1

REPORT INFORMATION
  Report Type: 
  Country: None (occurrence: None)
  Receive Date: 20050119
  Receipt Date: 20050119
  Transmission Date: 20050727
  Serious: Yes (Other)
  Sender: FDA-Public Use
  Company Number: None

PATIENT
  Age: 74 Year
  Sex: Male
  Weight: 68.4 kg

DRUGS (1)
  1. MIDAZOLAM HCL [Suspect]
     Indication: SEDATION
     Dosage: 0.5MG   NOW   INTRAVENOU
     Route: 042
     Dates: start: 20050118, end: 20050118

REACTIONS (2)
  - INFUSION RELATED REACTION [None]
  - RASH GENERALISED [None]
